FAERS Safety Report 8437181-9 (Version None)
Quarter: 2012Q2

REPORT INFORMATION
  Report Type: 
  Country: None (occurrence: None)
  Receive Date: 20120614
  Receipt Date: 20120425
  Transmission Date: 20120825
  Serious: No
  Sender: FDA-Public Use
  Company Number: US-AMGEN-USASP2012015944

PATIENT
  Age: 63 Year
  Sex: Female
  Weight: 42.177 kg

DRUGS (5)
  1. ACIPHEX [Concomitant]
     Indication: GASTROOESOPHAGEAL REFLUX DISEASE
     Dosage: UNK
  2. PROLIA [Suspect]
     Indication: OSTEOPOROSIS POSTMENOPAUSAL
     Dosage: UNK UNK, Q6MO
     Route: 058
     Dates: start: 20120207
  3. LIPITOR [Concomitant]
     Indication: CEREBROVASCULAR ACCIDENT
     Dosage: 10 MG, QD
     Route: 048
     Dates: start: 20110729
  4. CALCIUM [Concomitant]
     Dosage: UNK
  5. VITAMIN D [Concomitant]
     Dosage: UNK

REACTIONS (5)
  - FATIGUE [None]
  - ERYTHEMA [None]
  - BURNING SENSATION [None]
  - MUSCULAR WEAKNESS [None]
  - PAIN IN EXTREMITY [None]
